FAERS Safety Report 23406532 (Version 1)
Quarter: 2024Q1

REPORT INFORMATION
  Report Type: Spontaneous
  Country: US (occurrence: US)
  Receive Date: 20240116
  Receipt Date: 20240116
  Transmission Date: 20240410
  Serious: No
  Sender: FDA-Public Use
  Company Number: US-FreseniusKabi-FK202400727

PATIENT
  Age: 5 Year
  Sex: Male

DRUGS (1)
  1. ANESTHESIA S/I-40 [Suspect]
     Active Substance: PROPOFOL
     Indication: Anaesthesia

REACTIONS (1)
  - Hypersensitivity [Unknown]
